FAERS Safety Report 23667590 (Version 1)
Quarter: 2024Q1

REPORT INFORMATION
  Report Type: Spontaneous
  Country: US (occurrence: US)
  Receive Date: 20240325
  Receipt Date: 20240325
  Transmission Date: 20240410
  Serious: Yes (Other)
  Sender: FDA-Public Use
  Company Number: US-009507513-2403USA006412

PATIENT
  Age: 64 Year
  Sex: Female

DRUGS (2)
  1. WELIREG [Suspect]
     Active Substance: BELZUTIFAN
     Indication: Renal cell carcinoma
     Dosage: 3 DOSAGE FORM, UNKNOWN FREQUENCY
     Route: 048
  2. WELIREG [Suspect]
     Active Substance: BELZUTIFAN
     Dosage: 2 DOSAGE FORM, UNKNOWN FREQUENCY
     Route: 048

REACTIONS (3)
  - Arthritis reactive [Unknown]
  - Respiratory tract infection [Unknown]
  - Product dose omission issue [Unknown]

NARRATIVE: CASE EVENT DATE: 20240301
